FAERS Safety Report 9839431 (Version 1)
Quarter: 2014Q1

REPORT INFORMATION
  Report Type: Report from Study
  Country: AT (occurrence: AT)
  Receive Date: 20140123
  Receipt Date: 20140123
  Transmission Date: 20141002
  Serious: Yes (Death)
  Sender: FDA-Public Use
  Company Number: AT-ROCHE-1337644

PATIENT
  Age: 74 Year
  Sex: Male
  Weight: 80 kg

DRUGS (7)
  1. RITUXIMAB [Suspect]
     Indication: DISEASE PROGRESSION
     Dosage: START OF THERAPY
     Route: 042
     Dates: start: 20050321
  2. RITUXIMAB [Suspect]
     Dosage: START OF THERAPY
     Route: 042
     Dates: start: 20050418
  3. RITUXIMAB [Suspect]
     Dosage: START OF THERAPY
     Route: 042
     Dates: start: 20050513
  4. PREDNISONE [Concomitant]
  5. CYCLOPHOSPHAMIDE [Concomitant]
  6. HYDROXYDAUNORUBICIN [Concomitant]
  7. VINCRISTINE [Concomitant]

REACTIONS (1)
  - Death [Fatal]
